FAERS Safety Report 12322143 (Version 1)
Quarter: 2016Q2

REPORT INFORMATION
  Report Type: Report from Study
  Country: BR (occurrence: BR)
  Receive Date: 20160502
  Receipt Date: 20160502
  Transmission Date: 20160815
  Serious: Yes (Other)
  Sender: FDA-Public Use
  Company Number: PHHY2016BR058026

PATIENT
  Age: 58 Year
  Sex: Female
  Weight: 65 kg

DRUGS (1)
  1. DIOVAN HCT [Suspect]
     Active Substance: HYDROCHLOROTHIAZIDE\VALSARTAN
     Indication: HYPERTENSION
     Dosage: 1 DF (HYDROCHLOROTHIAZIDE 12.5 MG, VALSARTAN 160 MG), QD
     Route: 048

REACTIONS (11)
  - Neck pain [Unknown]
  - Asthenia [Unknown]
  - Migraine [Recovering/Resolving]
  - Body temperature abnormal [Unknown]
  - Affect lability [Unknown]
  - Peripheral swelling [Unknown]
  - Blood cholesterol abnormal [Unknown]
  - Dysphonia [Recovering/Resolving]
  - Poor quality sleep [Unknown]
  - Headache [Unknown]
  - Thyroid disorder [Unknown]

NARRATIVE: CASE EVENT DATE: 201506
